FAERS Safety Report 25541299 (Version 1)
Quarter: 2025Q3

REPORT INFORMATION
  Report Type: Spontaneous
  Country: EU (occurrence: EU)
  Receive Date: 20250711
  Receipt Date: 20250711
  Transmission Date: 20251021
  Serious: Yes (Other)
  Sender: TEVA
  Company Number: None

PATIENT
  Age: 29 Year
  Sex: Male

DRUGS (3)
  1. PAROXETINE [Suspect]
     Active Substance: PAROXETINE
     Indication: Adjustment disorder with depressed mood
     Dosage: PAROXETINE (ANHYDROCHLORIDE)
     Route: 048
     Dates: start: 202401, end: 202401
  2. HULIO [Concomitant]
     Active Substance: ADALIMUMAB-FKJP
     Indication: Ankylosing spondylitis
     Route: 065
  3. BUPRENORPHINE [Concomitant]
     Active Substance: BUPRENORPHINE
     Indication: Drug dependence
     Route: 065

REACTIONS (1)
  - Toxic skin eruption [Recovered/Resolved]

NARRATIVE: CASE EVENT DATE: 20240101
